FAERS Safety Report 9471735 (Version 1)
Quarter: 2013Q3

REPORT INFORMATION
  Report Type: Spontaneous
  Country: FR (occurrence: None)
  Receive Date: 20130819
  Receipt Date: 20130819
  Transmission Date: 20140515
  Serious: Yes (Hospitalization)
  Sender: FDA-Public Use
  Company Number: SYM-2013-08394

PATIENT
  Age: 44 Year
  Sex: Male

DRUGS (2)
  1. FLAGYL [Suspect]
     Indication: PROPHYLAXIS
     Route: 048
     Dates: start: 20130605, end: 20130606
  2. IXPRIM [Suspect]
     Indication: PAIN
     Route: 048
     Dates: start: 20130605, end: 20130611

REACTIONS (13)
  - Drug eruption [None]
  - Paraesthesia [None]
  - Burning sensation [None]
  - Stomatitis [None]
  - Lymphadenopathy [None]
  - Hypogammaglobulinaemia [None]
  - Inflammation [None]
  - Toxic skin eruption [None]
  - Pain [None]
  - Skin exfoliation [None]
  - No reaction on previous exposure to drug [None]
  - Tooth abscess [None]
  - Oedema [None]
